FAERS Safety Report 8237280-0 (Version None)
Quarter: 2012Q1

REPORT INFORMATION
  Report Type: 
  Country: None (occurrence: None)
  Receive Date: 20120327
  Receipt Date: 20120320
  Transmission Date: 20120608
  Serious: Yes (Hospitalization)
  Sender: FDA-Public Use
  Company Number: NL-B.I. PHARMACEUTICALS,INC./RIDGEFIELD-2012-EU-01494EU

PATIENT
  Sex: Male
  Weight: 85 kg

DRUGS (9)
  1. DABIGATRAN [Suspect]
     Indication: ATRIAL FIBRILLATION
  2. METFORMIN HCL [Concomitant]
     Indication: DIABETES MELLITUS
     Dosage: 1000 MG
     Route: 048
     Dates: start: 20120101
  3. DABIGATRAN [Suspect]
     Indication: CEREBROVASCULAR ACCIDENT PROPHYLAXIS
     Route: 048
     Dates: start: 20070816
  4. METOPROLOL SUCCINATE [Concomitant]
     Indication: ATRIAL FIBRILLATION
     Dosage: 50 MG
     Route: 048
     Dates: start: 20090101
  5. ESOMEPRAZOLE MAGNESIUM [Concomitant]
     Indication: ABDOMINAL DISCOMFORT
     Dosage: 40 MG
     Route: 048
     Dates: start: 20070101
  6. FLUVASTATIN [Concomitant]
     Indication: HYPERCHOLESTEROLAEMIA
     Dosage: 40 MG
     Route: 048
     Dates: start: 20070101
  7. FUROSEMIDE [Concomitant]
     Indication: DYSPNOEA
     Dosage: 40 MG
     Route: 048
     Dates: start: 20090101
  8. ALLOPURINOL [Concomitant]
     Indication: GOUT
     Dosage: 300 MG
     Route: 048
     Dates: start: 20070101
  9. FINASTERIDE [Concomitant]
     Indication: PROSTATIC DISORDER
     Dosage: 5 MG
     Route: 048
     Dates: start: 20070101

REACTIONS (1)
  - CEREBROVASCULAR ACCIDENT [None]
